FAERS Safety Report 9465277 (Version 1)
Quarter: 2013Q3

REPORT INFORMATION
  Report Type: Spontaneous
  Country: GB (occurrence: GB)
  Receive Date: 20130819
  Receipt Date: 20130819
  Transmission Date: 20140515
  Serious: Yes (Hospitalization)
  Sender: FDA-Public Use
  Company Number: PHHY2013GB086842

PATIENT
  Age: 56 Year
  Sex: Female
  Weight: 80 kg

DRUGS (8)
  1. RAMIPRIL [Suspect]
     Indication: HYPERTENSION
     Route: 048
     Dates: start: 20130125, end: 20130201
  2. SENNA [Concomitant]
     Dosage: UNK
  3. DOCUSATE [Concomitant]
     Dosage: UNK
  4. CHLORHEXIDINE [Concomitant]
     Dosage: UNK
  5. CLONIDINE [Concomitant]
     Dosage: UNK
  6. ORAMORPH [Concomitant]
     Dosage: UNK
  7. PROPOFOL [Concomitant]
     Dosage: UNK
  8. REMIFENTANIL [Concomitant]
     Dosage: UNK

REACTIONS (4)
  - Wheezing [Unknown]
  - Angioedema [Recovered/Resolved]
  - Lip swelling [Unknown]
  - Swollen tongue [Unknown]
